FAERS Safety Report 7281432-3 (Version None)
Quarter: 2011Q1

REPORT INFORMATION
  Report Type: 
  Country: None (occurrence: None)
  Receive Date: 20110208
  Receipt Date: 20110204
  Transmission Date: 20110831
  Serious: Yes (Hospitalization)
  Sender: FDA-Public Use
  Company Number: BA-ABBOTT-11P-211-0702832-00

PATIENT
  Sex: Male
  Weight: 117 kg

DRUGS (4)
  1. TAMIFLU [Concomitant]
     Indication: INFLUENZA
     Route: 048
     Dates: start: 20110110, end: 20110115
  2. PARACETAMOL [Concomitant]
     Indication: INFLUENZA
     Dosage: 500-1000 MG; ONCE/TWICE DAILY AS NEEDED
     Dates: start: 20110110, end: 20110117
  3. KLACID [Suspect]
     Indication: BRONCHOPNEUMONIA
     Route: 048
     Dates: start: 20110112, end: 20110115
  4. KLACID [Suspect]
     Indication: INFLUENZA
     Route: 042
     Dates: start: 20110110, end: 20110112

REACTIONS (2)
  - DERMATITIS BULLOUS [None]
  - APPLICATION SITE PRURITUS [None]
